FAERS Safety Report 10583210 (Version 2)
Quarter: 2014Q4

REPORT INFORMATION
  Report Type: Spontaneous
  Country: DE (occurrence: DE)
  Receive Date: 20141114
  Receipt Date: 20141114
  Transmission Date: 20150529
  Serious: Yes (Death, Life-Threatening, Hospitalization, Other)
  Sender: FDA-Public Use
  Company Number: DE-AUROBINDO-AUR-APL-2014-07314

PATIENT
  Age: 58 Year
  Sex: Male

DRUGS (2)
  1. ASPIRIN. [Concomitant]
     Active Substance: ASPIRIN
     Indication: PAIN
     Dosage: 500 MG, UNK
  2. METFORMIN [Suspect]
     Active Substance: METFORMIN HYDROCHLORIDE
     Indication: TYPE 2 DIABETES MELLITUS
     Dosage: 1000 MG, TWO TIMES A DAY
     Route: 048

REACTIONS (4)
  - Lactic acidosis [Fatal]
  - Septic shock [Fatal]
  - Overdose [Fatal]
  - Drug level above therapeutic [Unknown]

NARRATIVE: CASE EVENT DATE: 20140522
